FAERS Safety Report 6926483-0 (Version None)
Quarter: 2010Q3

REPORT INFORMATION
  Report Type: 
  Country: None (occurrence: None)
  Receive Date: 20100816
  Receipt Date: 20100806
  Transmission Date: 20110219
  Serious: Yes (Hospitalization)
  Sender: FDA-Public Use
  Company Number: DE-ABBOTT-10P-062-0658883-00

PATIENT
  Sex: Female
  Weight: 92 kg

DRUGS (14)
  1. ZEMPLAR [Suspect]
     Indication: HYPERPARATHYROIDISM SECONDARY
     Route: 042
     Dates: start: 20091130
  2. BISOPROLOL [Concomitant]
     Indication: HYPERTENSION
     Route: 048
  3. TORASEMID [Concomitant]
     Indication: HYPERTENSION
     Route: 048
  4. OSVAREN [Concomitant]
     Indication: PRODUCT USED FOR UNKNOWN INDICATION
  5. DREISAVIT N [Concomitant]
     Indication: PRODUCT USED FOR UNKNOWN INDICATION
  6. BENAZEPRIL [Concomitant]
     Indication: HYPERTENSION
     Route: 048
  7. FENTANYL PLASTER [Concomitant]
     Indication: PAIN
     Dosage: PER HOUR EVERY THREE DAYS
  8. RESTEX [Concomitant]
     Indication: RESTLESS LEGS SYNDROME
     Dosage: ON DEMAND
  9. MARCUMAR [Concomitant]
     Indication: PRODUCT USED FOR UNKNOWN INDICATION
     Dosage: ACCORDING TO TARGET INR 2-3
  10. NEORECORMON [Concomitant]
     Indication: ANAEMIA
  11. FERRLECIT [Concomitant]
     Indication: PRODUCT USED FOR UNKNOWN INDICATION
  12. VITAMINE B12 [Concomitant]
     Indication: PRODUCT USED FOR UNKNOWN INDICATION
     Route: 042
  13. ASPIRIN [Concomitant]
     Indication: PRODUCT USED FOR UNKNOWN INDICATION
     Route: 048
     Dates: start: 20100629
  14. CALCIUMACETAT [Concomitant]
     Indication: PRODUCT USED FOR UNKNOWN INDICATION
     Dates: start: 20100629

REACTIONS (5)
  - ARTERIOSCLEROSIS OBLITERANS [None]
  - ERYTHEMA [None]
  - OEDEMA PERIPHERAL [None]
  - PAIN IN EXTREMITY [None]
  - PULSE ABSENT [None]
